FAERS Safety Report 5768919-7 (Version None)
Quarter: 2008Q2

REPORT INFORMATION
  Report Type: 
  Country: None (occurrence: None)
  Receive Date: 20080610
  Receipt Date: 20080529
  Transmission Date: 20081010
  Serious: Yes (Other)
  Sender: FDA-Public Use
  Company Number: GXKR2008GB01318

PATIENT
  Age: 67 Year
  Sex: Female

DRUGS (6)
  1. ACETYLSALICYLIC ACID SRT [Suspect]
     Indication: MYOCARDIAL INFARCTION
  2. RAMIPRIL [Suspect]
     Indication: MYOCARDIAL INFARCTION
  3. SIMVASTATIN [Suspect]
     Indication: MYOCARDIAL INFARCTION
  4. PREGABALIN (PREGABALIN) UNKNOWN [Suspect]
     Indication: TRIGEMINAL NEURALGIA
     Dosage: 300 MG, BID
  5. PLAVIX [Suspect]
     Indication: MYOCARDIAL INFARCTION
  6. BISOPROLOL FUMARATE [Suspect]
     Indication: MYOCARDIAL INFARCTION

REACTIONS (5)
  - CONDITION AGGRAVATED [None]
  - DRUG INEFFECTIVE [None]
  - DRUG INTERACTION [None]
  - MYOCARDIAL INFARCTION [None]
  - TRIGEMINAL NEURALGIA [None]
